FAERS Safety Report 15921797 (Version 2)
Quarter: 2019Q1

REPORT INFORMATION
  Report Type: Spontaneous
  Country: US (occurrence: US)
  Receive Date: 20190205
  Receipt Date: 20190219
  Transmission Date: 20190417
  Serious: No
  Sender: FDA-Public Use
  Company Number: US-ALLERGAN-1805293US

PATIENT
  Age: 35 Year
  Sex: Female

DRUGS (1)
  1. BOTOX [Suspect]
     Active Substance: ONABOTULINUMTOXINA
     Indication: PRODUCT USED FOR UNKNOWN INDICATION
     Dosage: UNK UNK, SINGLE
     Route: 030
     Dates: start: 20180129, end: 20180129

REACTIONS (5)
  - Pallor [Unknown]
  - Syncope [Unknown]
  - Gait disturbance [Unknown]
  - Joint stiffness [Unknown]
  - Reduced facial expression [Unknown]

NARRATIVE: CASE EVENT DATE: 20180129
